FAERS Safety Report 11330927 (Version 2)
Quarter: 2015Q3

REPORT INFORMATION
  Report Type: Spontaneous
  Country: PL (occurrence: PL)
  Receive Date: 20150803
  Receipt Date: 20150804
  Transmission Date: 20151125
  Serious: Yes (Life-Threatening)
  Sender: FDA-Public Use
  Company Number: PL-B.I. PHARMACEUTICALS,INC./RIDGEFIELD-2015-BI-41587PN

PATIENT
  Age: 65 Year
  Sex: Male
  Weight: 90 kg

DRUGS (1)
  1. PRADAXA [Suspect]
     Active Substance: DABIGATRAN ETEXILATE MESYLATE
     Indication: ATRIAL FIBRILLATION
     Dosage: 300 MG
     Route: 048
     Dates: start: 20150701

REACTIONS (1)
  - Atrial thrombosis [Not Recovered/Not Resolved]

NARRATIVE: CASE EVENT DATE: 20150730
